FAERS Safety Report 13827042 (Version 1)
Quarter: 2017Q3

REPORT INFORMATION
  Report Type: Spontaneous
  Country: US (occurrence: US)
  Receive Date: 20170802
  Receipt Date: 20170802
  Transmission Date: 20171127
  Serious: No
  Sender: FDA-Public Use
  Company Number: US-ROCHE-662339

PATIENT

DRUGS (1)
  1. BONIVA [Suspect]
     Active Substance: IBANDRONATE SODIUM
     Indication: PRODUCT USED FOR UNKNOWN INDICATION
     Route: 065

REACTIONS (9)
  - Pyrexia [Unknown]
  - Mental impairment [Unknown]
  - Bone pain [Not Recovered/Not Resolved]
  - Anxiety [Unknown]
  - Thinking abnormal [Unknown]
  - Myalgia [Not Recovered/Not Resolved]
  - Pain [Unknown]
  - Chills [Unknown]
  - Asthenia [Not Recovered/Not Resolved]
